FAERS Safety Report 16399416 (Version 1)
Quarter: 2019Q2

REPORT INFORMATION
  Report Type: Spontaneous
  Country: GB (occurrence: GB)
  Receive Date: 20190606
  Receipt Date: 20190606
  Transmission Date: 20190711
  Serious: Yes (Hospitalization, Disabling)
  Sender: FDA-Public Use
  Company Number: GB-TEVA-2019-GB-1058266

PATIENT
  Age: 84 Year

DRUGS (7)
  1. HYLO-FORTE [Concomitant]
     Active Substance: HYALURONATE SODIUM
  2. FUROSEMIDE SODIUM [Suspect]
     Active Substance: FUROSEMIDE SODIUM
     Dosage: 40MG PER 1 DAY
     Route: 048
     Dates: start: 20170414, end: 20190430
  3. CASSIA [Concomitant]
  4. QUININE SULFATE. [Concomitant]
     Active Substance: QUININE SULFATE
  5. BETAHISTINE [Concomitant]
     Active Substance: BETAHISTINE
  6. ADCAL-D3 [Concomitant]
     Active Substance: CALCIUM CARBONATE\CHOLECALCIFEROL
  7. LAXIDO [Concomitant]
     Active Substance: POLYETHYLENE GLYCOL 3350\POTASSIUM CHLORIDE\SODIUM BICARBONATE\SODIUM CHLORIDE

REACTIONS (4)
  - Acute kidney injury [Recovering/Resolving]
  - Hypokalaemia [Unknown]
  - Lethargy [Unknown]
  - Somnolence [Unknown]

NARRATIVE: CASE EVENT DATE: 20190420
